FAERS Safety Report 12405146 (Version 1)
Quarter: 2016Q2

REPORT INFORMATION
  Report Type: Spontaneous
  Country: US (occurrence: US)
  Receive Date: 20160525
  Receipt Date: 20160525
  Transmission Date: 20160815
  Serious: Yes (Other)
  Sender: FDA-Public Use
  Company Number: US-ASTRAZENECA-2016SE53858

PATIENT
  Sex: Female

DRUGS (2)
  1. CRESTOR [Suspect]
     Active Substance: ROSUVASTATIN CALCIUM
     Route: 048
  2. ATORVASTATIN [Suspect]
     Active Substance: ATORVASTATIN
     Route: 065

REACTIONS (5)
  - Tremor [Unknown]
  - Chills [Unknown]
  - Alopecia [Unknown]
  - Feeling jittery [Unknown]
  - Liver disorder [Unknown]
